FAERS Safety Report 24711849 (Version 1)
Quarter: 2024Q4

REPORT INFORMATION
  Report Type: Spontaneous
  Country: US (occurrence: None)
  Receive Date: 20241206
  Receipt Date: 20241206
  Transmission Date: 20250114
  Serious: Yes (Hospitalization)
  Sender: Public
  Company Number: None

PATIENT
  Age: 81 Year
  Sex: Female

DRUGS (1)
  1. NUPLAZID [Suspect]
     Active Substance: PIMAVANSERIN TARTRATE
     Indication: Psychotic disorder
     Dosage: 34 MG DAILY ORAL ?
     Route: 048
     Dates: start: 20240920

REACTIONS (2)
  - Arthritis [None]
  - Gait inability [None]

NARRATIVE: CASE EVENT DATE: 20241102
